FAERS Safety Report 5682846-5 (Version None)
Quarter: 2008Q1

REPORT INFORMATION
  Report Type: 
  Country: None (occurrence: None)
  Receive Date: 20080327
  Receipt Date: 20080325
  Transmission Date: 20080703
  Serious: Yes (Hospitalization)
  Sender: FDA-Public Use
  Company Number: B0505488A

PATIENT
  Age: 8 Year
  Sex: Female
  Weight: 19.8 kg

DRUGS (1)
  1. RELENZA [Suspect]
     Indication: INFLUENZA
     Dosage: 10MG TWICE PER DAY
     Route: 055
     Dates: start: 20080118, end: 20080123

REACTIONS (7)
  - AFFECT LABILITY [None]
  - AGITATION [None]
  - DELIRIUM [None]
  - HALLUCINATION [None]
  - LOGORRHOEA [None]
  - PYREXIA [None]
  - SPEECH DISORDER [None]
